FAERS Safety Report 23809350 (Version 1)
Quarter: 2024Q2

REPORT INFORMATION
  Report Type: Spontaneous
  Country: US (occurrence: None)
  Receive Date: 20240501
  Receipt Date: 20240501
  Transmission Date: 20240716
  Serious: No
  Sender: FDA-Public Use
  Company Number: None

PATIENT
  Age: 62 Year
  Sex: Female
  Weight: 103.95 kg

DRUGS (13)
  1. MOUNJARO [Suspect]
     Active Substance: TIRZEPATIDE
     Indication: Diabetes mellitus
     Dosage: 1 INJECTION WEEKLY SUBCUTANEOUS
     Route: 058
     Dates: start: 20231231, end: 20240314
  2. MOUNJARO [Suspect]
     Active Substance: TIRZEPATIDE
     Indication: Weight decreased
  3. LEVOTHYROXINE [Concomitant]
     Active Substance: LEVOTHYROXINE\LEVOTHYROXINE SODIUM
  4. LEVEMIR [Concomitant]
     Active Substance: INSULIN DETEMIR
  5. DEXCOM [Concomitant]
  6. INSULIN LISPRO [Concomitant]
     Active Substance: INSULIN LISPRO
  7. OMEGA 3 [Concomitant]
     Active Substance: CAPSAICIN
  8. D3 VITAMINS [Concomitant]
  9. VITAMIN D3 [Concomitant]
     Active Substance: CHOLECALCIFEROL
  10. VITAMIN C [Concomitant]
  11. B6 + B12 [Concomitant]
  12. WOMEN^S MULTIVITASMIN [Concomitant]
  13. OSTEO BONE HEALTH VITAMIN [Concomitant]

REACTIONS (3)
  - Mouth swelling [None]
  - Gingival bleeding [None]
  - Platelet count decreased [None]

NARRATIVE: CASE EVENT DATE: 20240313
